FAERS Safety Report 7221634-5 (Version None)
Quarter: 2011Q1

REPORT INFORMATION
  Report Type: 
  Country: None (occurrence: None)
  Receive Date: 20110112
  Receipt Date: 20101222
  Transmission Date: 20110831
  Serious: Yes (Death, Hospitalization)
  Sender: FDA-Public Use
  Company Number: TH-ROCHE-727725

PATIENT
  Age: 81 Year
  Sex: Female

DRUGS (15)
  1. RECORMON [Suspect]
     Route: 065
     Dates: start: 20100902, end: 20100913
  2. HYDERGINE [Concomitant]
  3. KIDMIN [Concomitant]
     Dosage: 200 ML, HEMODIALYSIS
  4. CHALKCAP [Concomitant]
  5. ZANIDIP [Concomitant]
  6. MICARDIS [Concomitant]
  7. BETALOC [Concomitant]
  8. MIRCERA [Suspect]
     Route: 058
     Dates: start: 20100805, end: 20100822
  9. MEDICPLEX [Concomitant]
  10. MIRCERA [Suspect]
     Route: 058
     Dates: start: 20091019, end: 20091204
  11. MIRCERA [Suspect]
     Route: 058
     Dates: start: 20091204, end: 20100504
  12. VYTORIN [Concomitant]
     Dosage: VYTORIN 10/40
  13. MIRCERA [Suspect]
     Route: 058
     Dates: start: 20100504, end: 20100805
  14. FOLIC ACID [Concomitant]
  15. SODA MINT [Concomitant]

REACTIONS (6)
  - HAEMODIALYSIS [None]
  - ANTI-ERYTHROPOIETIN ANTIBODY POSITIVE [None]
  - MYOCARDIAL INFARCTION [None]
  - APLASIA PURE RED CELL [None]
  - NEUTRALISING ANTIBODIES POSITIVE [None]
  - NO THERAPEUTIC RESPONSE [None]
